FAERS Safety Report 17825569 (Version 1)
Quarter: 2020Q2

REPORT INFORMATION
  Report Type: Spontaneous
  Country: CA (occurrence: CA)
  Receive Date: 20200526
  Receipt Date: 20200526
  Transmission Date: 20200714
  Serious: Yes (Other)
  Sender: FDA-Public Use
  Company Number: CA-TEVA-2020-CA-1238961

PATIENT
  Age: 9 Year
  Sex: Male

DRUGS (7)
  1. MERCAPTOPURINE. [Concomitant]
     Active Substance: MERCAPTOPURINE
  2. PEGASPARGASE [Concomitant]
     Active Substance: PEGASPARGASE
  3. DOXORUBICIN HYDROCHLORIDE. [Suspect]
     Active Substance: DOXORUBICIN HYDROCHLORIDE
     Indication: ACUTE LYMPHOCYTIC LEUKAEMIA
     Route: 042
  4. HYDROCORTISONE. [Concomitant]
     Active Substance: HYDROCORTISONE
  5. METHOTREXATE. [Concomitant]
     Active Substance: METHOTREXATE
  6. CYTARABINE. [Concomitant]
     Active Substance: CYTARABINE
     Route: 037
  7. VINCRISTINE SULFATE. [Concomitant]
     Active Substance: VINCRISTINE SULFATE

REACTIONS (4)
  - Diastolic dysfunction [Unknown]
  - Aortic dilatation [Unknown]
  - Affective disorder [Unknown]
  - Ejection fraction decreased [Unknown]
